FAERS Safety Report 9461925 (Version 1)
Quarter: 2013Q3

REPORT INFORMATION
  Report Type: Spontaneous
  Country: FR (occurrence: FR)
  Receive Date: 20130816
  Receipt Date: 20130816
  Transmission Date: 20140515
  Serious: Yes (Hospitalization, Other)
  Sender: FDA-Public Use
  Company Number: FR-ASTRAZENECA-2013SE62514

PATIENT
  Age: 62 Year
  Sex: Female

DRUGS (7)
  1. INEXIUM [Suspect]
     Route: 048
  2. GABAPENTINE [Suspect]
     Indication: NEURALGIA
     Dates: start: 20130415, end: 201306
  3. GABAPENTINE [Suspect]
     Indication: NEURALGIA
     Dates: end: 20130621
  4. LAROXYL [Suspect]
     Dosage: 30 DROPS/DAY
     Route: 048
     Dates: start: 20130403
  5. ZOPLICONE [Suspect]
     Route: 048
     Dates: start: 20130413
  6. OXYNORMORO [Suspect]
     Dates: start: 20130405
  7. LEVOTHYROX [Suspect]

REACTIONS (5)
  - Breast cancer metastatic [Unknown]
  - Mastocytosis [Unknown]
  - Leukopenia [Not Recovered/Not Resolved]
  - Back pain [Unknown]
  - Neuralgia [Unknown]
